FAERS Safety Report 6946230-6 (Version None)
Quarter: 2010Q3

REPORT INFORMATION
  Report Type: 
  Country: None (occurrence: None)
  Receive Date: 20100827
  Receipt Date: 20100818
  Transmission Date: 20110219
  Serious: Yes (Hospitalization)
  Sender: FDA-Public Use
  Company Number: DE-ABBOTT-10P-062-0657167-00

PATIENT
  Sex: Female
  Weight: 59 kg

DRUGS (6)
  1. HUMIRA [Suspect]
     Indication: POLYARTHRITIS
     Route: 058
     Dates: start: 20070831
  2. MTX [Concomitant]
     Indication: POLYARTHRITIS
     Route: 048
     Dates: start: 20100101
  3. PREDNISOLONE [Concomitant]
     Indication: POLYARTHRITIS
     Route: 048
     Dates: start: 20100620
  4. METHOTREXAT 12.5 [Concomitant]
     Indication: PRODUCT USED FOR UNKNOWN INDICATION
     Dosage: EVERY OTHER THURSDAY
  5. FOLIC ACID [Concomitant]
     Indication: PRODUCT USED FOR UNKNOWN INDICATION
     Dosage: ON FRIDAY AFTER METHOTREXAT EVERY OTHER FRIDAY AFTER MTX ON THURSDAY
  6. DECORTIN 2.5 [Concomitant]
     Indication: PRODUCT USED FOR UNKNOWN INDICATION
     Dosage: OPD, MORNING

REACTIONS (11)
  - DIZZINESS [None]
  - DIZZINESS POSTURAL [None]
  - EYE PAIN [None]
  - FALL [None]
  - HEADACHE [None]
  - JOINT DISLOCATION [None]
  - MIGRAINE [None]
  - NAUSEA [None]
  - NEUROLOGICAL SYMPTOM [None]
  - VISION BLURRED [None]
  - VOMITING [None]
